FAERS Safety Report 21982024 (Version 1)
Quarter: 2023Q1

REPORT INFORMATION
  Report Type: Other
  Country: None (occurrence: GR)
  Receive Date: 20230213
  Receipt Date: 20230213
  Transmission Date: 20230417
  Serious: Yes (Other)
  Sender: FDA-Public Use
  Company Number: GR-Appco Pharma LLC-2137808

PATIENT
  Age: 68 Year
  Sex: Male

DRUGS (1)
  1. IRBESARTAN [Suspect]
     Active Substance: IRBESARTAN
     Indication: Glomerulonephritis membranous
     Route: 065

REACTIONS (1)
  - Drug ineffective [Unknown]
